FAERS Safety Report 5627078-1 (Version None)
Quarter: 2008Q1

REPORT INFORMATION
  Report Type: 
  Country: None (occurrence: None)
  Receive Date: 20080115
  Receipt Date: 20070604
  Transmission Date: 20080703
  Serious: Yes (Other)
  Sender: FDA-Public Use
  Company Number: 2007033916

PATIENT
  Age: 63 Year
  Sex: Female
  Weight: 67 kg

DRUGS (7)
  1. AROMASIN [Suspect]
     Indication: BREAST CANCER
     Dates: start: 20070101, end: 20070401
  2. VITAMIN C (VITAMIN C) [Concomitant]
  3. VITAMIN D [Concomitant]
  4. CALCIUM (CALCIUM) [Concomitant]
  5. GLUCOSAMINE (GLUCOSAMINE) [Concomitant]
  6. OXYCODONE HCL [Concomitant]
  7. SULINDAC [Concomitant]

REACTIONS (3)
  - MYALGIA [None]
  - NECK PAIN [None]
  - PAIN IN EXTREMITY [None]
